FAERS Safety Report 19164009 (Version 2)
Quarter: 2021Q3

REPORT INFORMATION
  Report Type: Spontaneous
  Country: PA (occurrence: PA)
  Receive Date: 20210421
  Receipt Date: 20210811
  Transmission Date: 20211014
  Serious: Yes (Other)
  Sender: FDA-Public Use
  Company Number: PA-PFIZER INC-2021410065

PATIENT
  Sex: Female

DRUGS (1)
  1. XELJANZ [Suspect]
     Active Substance: TOFACITINIB CITRATE

REACTIONS (6)
  - Headache [Unknown]
  - Dizziness [Unknown]
  - Myocardial infarction [Unknown]
  - Malaise [Unknown]
  - Chest pain [Unknown]
  - Nausea [Unknown]
